FAERS Safety Report 13900341 (Version 3)
Quarter: 2017Q3

REPORT INFORMATION
  Report Type: Spontaneous
  Country: US (occurrence: US)
  Receive Date: 20170823
  Receipt Date: 20170921
  Transmission Date: 20171127
  Serious: Yes (Hospitalization, Other)
  Sender: FDA-Public Use
  Company Number: US-JAZZ-2017-US-010799

PATIENT
  Sex: Male

DRUGS (22)
  1. EXALGO [Concomitant]
     Active Substance: HYDROMORPHONE HYDROCHLORIDE
     Indication: PRODUCT USED FOR UNKNOWN INDICATION
     Dosage: UNK
     Dates: start: 201207, end: 201403
  2. EPIPEN [Concomitant]
     Active Substance: EPINEPHRINE
     Indication: PRODUCT USED FOR UNKNOWN INDICATION
  3. MORPHINE SULF [Concomitant]
     Active Substance: MORPHINE SULFATE
     Indication: PRODUCT USED FOR UNKNOWN INDICATION
  4. XYREM [Suspect]
     Active Substance: SODIUM OXYBATE
     Dosage: 4G, BID
     Route: 048
     Dates: start: 201603, end: 2016
  5. XYREM [Suspect]
     Active Substance: SODIUM OXYBATE
     Dosage: 4.5G, BID
     Route: 048
     Dates: start: 201603, end: 201609
  6. XYREM [Suspect]
     Active Substance: SODIUM OXYBATE
     Dosage: 4 G, QD
     Route: 048
     Dates: start: 201610, end: 2017
  7. AMBIEN CR [Concomitant]
     Active Substance: ZOLPIDEM TARTRATE
     Indication: PRODUCT USED FOR UNKNOWN INDICATION
  8. XYREM [Suspect]
     Active Substance: SODIUM OXYBATE
     Indication: CATAPLEXY
     Dosage: DOSE ADJUSMENTS
     Route: 048
     Dates: start: 201212, end: 201212
  9. XARTEMIS [Concomitant]
     Indication: PRODUCT USED FOR UNKNOWN INDICATION
     Dosage: UNK
     Dates: start: 201201, end: 201602
  10. CYMBALTA [Concomitant]
     Active Substance: DULOXETINE HYDROCHLORIDE
     Indication: PRODUCT USED FOR UNKNOWN INDICATION
     Dosage: UNK
     Dates: start: 201111
  11. XYREM [Suspect]
     Active Substance: SODIUM OXYBATE
     Dosage: 4.5G, BID
     Route: 048
     Dates: start: 201212, end: 2014
  12. XYREM [Suspect]
     Active Substance: SODIUM OXYBATE
     Dosage: 4.5G, BID
     Route: 048
     Dates: start: 201704
  13. LIMBITROL                          /00033501/ [Concomitant]
     Indication: PRODUCT USED FOR UNKNOWN INDICATION
     Dosage: UNK
     Dates: start: 201210, end: 201403
  14. OXYCODONE AND ACETAMINOPHEN [Concomitant]
     Active Substance: ACETAMINOPHEN\OXYCODONE HYDROCHLORIDE
     Indication: PRODUCT USED FOR UNKNOWN INDICATION
  15. METFORMIN HCL [Concomitant]
     Active Substance: METFORMIN HYDROCHLORIDE
     Indication: PRODUCT USED FOR UNKNOWN INDICATION
     Dosage: UNK
     Dates: start: 201403
  16. XYREM [Suspect]
     Active Substance: SODIUM OXYBATE
     Indication: NARCOLEPSY
     Dosage: 2.25G, BID
     Route: 048
     Dates: start: 201211, end: 201212
  17. XYREM [Suspect]
     Active Substance: SODIUM OXYBATE
     Dosage: 4.5G, QD
     Route: 048
     Dates: start: 201610, end: 2017
  18. GLIPIZIDE. [Concomitant]
     Active Substance: GLIPIZIDE
     Indication: PRODUCT USED FOR UNKNOWN INDICATION
     Dosage: UNK
     Dates: start: 201403
  19. REQUIP [Concomitant]
     Active Substance: ROPINIROLE HYDROCHLORIDE
     Indication: PRODUCT USED FOR UNKNOWN INDICATION
     Dosage: UNK
     Dates: start: 201207, end: 201403
  20. SKELAXIN [Concomitant]
     Active Substance: METAXALONE
     Indication: PRODUCT USED FOR UNKNOWN INDICATION
     Dosage: UNK
     Dates: start: 201207, end: 201602
  21. ENDOCET [Concomitant]
     Active Substance: ACETAMINOPHEN\OXYCODONE HYDROCHLORIDE
     Indication: PRODUCT USED FOR UNKNOWN INDICATION
     Dosage: UNK
     Dates: start: 200911, end: 201403
  22. BENADRYL ALLERGY + COLD [Concomitant]
     Indication: PRODUCT USED FOR UNKNOWN INDICATION

REACTIONS (3)
  - Somnolence [Unknown]
  - Disability [Unknown]
  - Hospitalisation [Unknown]

NARRATIVE: CASE EVENT DATE: 2016
